FAERS Safety Report 23499012 (Version 5)
Quarter: 2025Q2

REPORT INFORMATION
  Report Type: Report from Study
  Country: CN (occurrence: CN)
  Receive Date: 20240208
  Receipt Date: 20250416
  Transmission Date: 20250717
  Serious: Yes (Hospitalization)
  Sender: ROCHE
  Company Number: CN-ROCHE-3499656

PATIENT
  Age: 54 Year
  Sex: Male
  Weight: 80.0 kg

DRUGS (29)
  1. POLATUZUMAB VEDOTIN [Suspect]
     Active Substance: POLATUZUMAB VEDOTIN
     Indication: Diffuse large B-cell lymphoma
     Route: 065
  2. RITUXIMAB [Suspect]
     Active Substance: RITUXIMAB
     Indication: Diffuse large B-cell lymphoma
     Route: 042
  3. CYCLOPHOSPHAMIDE [Suspect]
     Active Substance: CYCLOPHOSPHAMIDE
     Indication: Diffuse large B-cell lymphoma
     Route: 042
  4. DOXORUBICIN HYDROCHLORIDE [Suspect]
     Active Substance: DOXORUBICIN HYDROCHLORIDE
     Indication: Diffuse large B-cell lymphoma
     Route: 042
  5. DEXAMETHASONE SODIUM PHOSPHATE [Suspect]
     Active Substance: DEXAMETHASONE SODIUM PHOSPHATE
     Indication: Diffuse large B-cell lymphoma
     Route: 042
  6. VINDESINE SULFATE [Suspect]
     Active Substance: VINDESINE SULFATE
     Indication: Diffuse large B-cell lymphoma
     Route: 065
  7. GANCICLOVIR [Concomitant]
     Active Substance: GANCICLOVIR
     Indication: Myelosuppression
     Route: 042
  8. ENTECAVIR [Concomitant]
     Active Substance: ENTECAVIR
     Dosage: SUBSEQUENT DOSE RECEIVED ON:  24-JAN-2024, 18-FEB-2024.  01-MAR-2024,
     Route: 048
     Dates: start: 20231124
  9. GRANULOCYTE COLONY-STIMULATING FACTOR NOS [Concomitant]
     Active Substance: GRANULOCYTE COLONY-STIMULATING FACTOR NOS
     Indication: Myelosuppression
     Dosage: SUBSEQUENT DOSE RECEIVED ON:  18-JAN-2024,  25-DEC-2023,  24-JAN-2024,  18-FEB-2024,  21-FEB-2024,
     Route: 058
     Dates: start: 20240109, end: 20240111
  10. GRANULOCYTE COLONY-STIMULATING FACTOR NOS [Concomitant]
     Active Substance: GRANULOCYTE COLONY-STIMULATING FACTOR NOS
     Indication: Pyrexia
  11. GRANULOCYTE COLONY-STIMULATING FACTOR NOS [Concomitant]
     Active Substance: GRANULOCYTE COLONY-STIMULATING FACTOR NOS
     Indication: Septic shock
  12. RECOMBINANT HUMAN THROMBOPOIETIN [Concomitant]
     Active Substance: RECOMBINANT HUMAN THROMBOPOIETIN
     Indication: Myelosuppression
     Dosage: 28-DEC-2023,
     Route: 058
     Dates: start: 20240109, end: 20240111
  13. RECOMBINANT HUMAN THROMBOPOIETIN [Concomitant]
     Active Substance: RECOMBINANT HUMAN THROMBOPOIETIN
     Indication: Pyrexia
  14. RECOMBINANT HUMAN THROMBOPOIETIN [Concomitant]
     Active Substance: RECOMBINANT HUMAN THROMBOPOIETIN
     Indication: Septic shock
  15. THYMALFASIN [Concomitant]
     Active Substance: THYMALFASIN
     Indication: Myelosuppression
     Route: 058
  16. NADROPARIN CALCIUM [Concomitant]
     Active Substance: NADROPARIN CALCIUM
     Indication: Myelosuppression
     Dosage: DOSE ADMINISTERED ON:  24-JAN-2024,  24-NOV-2023
     Route: 058
     Dates: start: 20240110
  17. VANCOMYCIN [Concomitant]
     Active Substance: VANCOMYCIN
     Indication: Myelosuppression
     Route: 042
  18. IMIPENEM AND CILASTATIN [Concomitant]
     Active Substance: CILASTATIN SODIUM\IMIPENEM
     Indication: Myelosuppression
     Route: 042
  19. POSACONAZOLE [Concomitant]
     Active Substance: POSACONAZOLE
     Indication: Myelosuppression
     Route: 048
  20. CASPOFUNGIN ACETATE [Concomitant]
     Active Substance: CASPOFUNGIN ACETATE
     Indication: Myelosuppression
     Route: 042
  21. DOPAMINE HYDROCHLORIDE [Concomitant]
     Active Substance: DOPAMINE HYDROCHLORIDE
     Indication: Myelosuppression
     Route: 042
  22. MESNA [Concomitant]
     Active Substance: MESNA
     Route: 042
     Dates: start: 20231125
  23. PANTOPRAZOLE SODIUM [Concomitant]
     Active Substance: PANTOPRAZOLE SODIUM
     Dosage: 13-JAN-2024,  16-JAN-2024,  30-DEC-2023,  20-DEC-2023,  02-MAR-2024, 13-MAY-2024,  21-APR-2024
     Route: 042
     Dates: start: 20231125, end: 20231128
  24. TROPISETRON HYDROCHLORIDE [Concomitant]
     Active Substance: TROPISETRON HYDROCHLORIDE
     Dosage: 13-JAN-2024,  16-JAN-2024,  20-DEC-2023,  02-MAR-2024,
     Route: 042
     Dates: start: 20231125, end: 20231129
  25. FUROSEMIDE [Concomitant]
     Active Substance: FUROSEMIDE
     Dosage: 16-JAN-2024, 13-JAN-2024,  02-MAR-2024,  13-MAY-2024, 21-APR-2024
     Route: 042
     Dates: start: 20231220, end: 20240115
  26. DIPHENHYDRAMINE HYDROCHLORIDE [Concomitant]
     Active Substance: DIPHENHYDRAMINE HYDROCHLORIDE
     Route: 030
     Dates: start: 20231128
  27. RANITIDINE HYDROCHLORIDE [Concomitant]
     Active Substance: RANITIDINE HYDROCHLORIDE
     Dosage: 19-DEC-2023,  12-JAN-2024,  27-DEC-2023, 24-JAN-2024,  01-MAR-2024,  12-MAY-2024,  20-APR-2024
     Route: 042
     Dates: start: 20231129, end: 20231213
  28. DEXRAZOXANE [Concomitant]
     Active Substance: DEXRAZOXANE
     Route: 042
     Dates: start: 20231128, end: 20231128
  29. ACETAMINOPHEN [Concomitant]
     Active Substance: ACETAMINOPHEN
     Route: 048
     Dates: start: 20231223

REACTIONS (4)
  - Myelosuppression [Recovered/Resolved]
  - White blood cell count decreased [Recovered/Resolved]
  - Platelet count decreased [Recovered/Resolved]
  - Myelosuppression [Recovered/Resolved]

NARRATIVE: CASE EVENT DATE: 20231203
